FAERS Safety Report 6868344-1 (Version None)
Quarter: 2010Q3

REPORT INFORMATION
  Report Type: 
  Country: None (occurrence: None)
  Receive Date: 20100722
  Receipt Date: 20080611
  Transmission Date: 20110219
  Serious: No
  Sender: FDA-Public Use
  Company Number: US-PFIZER INC-2008042599

PATIENT
  Sex: Female
  Weight: 60.9 kg

DRUGS (8)
  1. CHANTIX [Suspect]
     Indication: SMOKING CESSATION THERAPY
     Dates: start: 20080509
  2. TIMONACIC [Suspect]
  3. IMDUR [Concomitant]
  4. VERAPAMIL [Concomitant]
  5. ACETYLSALICYLIC ACID [Concomitant]
  6. COMBIVENT [Concomitant]
  7. ADVAIR DISKUS 100/50 [Concomitant]
  8. ANTIBIOTICS [Concomitant]
     Indication: PNEUMONIA

REACTIONS (5)
  - EPISTAXIS [None]
  - MALAISE [None]
  - NAUSEA [None]
  - RETCHING [None]
  - VOMITING [None]
